FAERS Safety Report 15616863 (Version 1)
Quarter: 2018Q4

REPORT INFORMATION
  Report Type: Spontaneous
  Country: JP (occurrence: JP)
  Receive Date: 20181114
  Receipt Date: 20181114
  Transmission Date: 20190205
  Serious: Yes (Hospitalization, Other)
  Sender: FDA-Public Use
  Company Number: JP-009507513-1804JPN002438J

PATIENT
  Sex: Female

DRUGS (2)
  1. KEYTRUDA [Suspect]
     Active Substance: PEMBROLIZUMAB
     Indication: LUNG ADENOCARCINOMA
     Dosage: UNK
     Route: 041
     Dates: start: 2017, end: 2018
  2. KEYTRUDA [Suspect]
     Active Substance: PEMBROLIZUMAB
     Dosage: UNK
     Route: 041
     Dates: start: 2018

REACTIONS (8)
  - Tumour marker increased [Unknown]
  - Alopecia [Unknown]
  - Drug ineffective [Unknown]
  - Ileus [Recovered/Resolved]
  - Pruritus [Recovering/Resolving]
  - Abdominal discomfort [Unknown]
  - Protein-losing gastroenteropathy [Recovered/Resolved]
  - Diarrhoea [Unknown]

NARRATIVE: CASE EVENT DATE: 2018
